FAERS Safety Report 11108943 (Version 1)
Quarter: 2015Q2

REPORT INFORMATION
  Report Type: Spontaneous
  Country: RU (occurrence: None)
  Receive Date: 20150511
  Receipt Date: 20150511
  Transmission Date: 20150821
  Serious: Yes (Other)
  Sender: FDA-Public Use
  Company Number: RU-MDCO-15-00240

PATIENT
  Age: 37 Year
  Sex: Female
  Weight: 100 kg

DRUGS (2)
  1. ANGIOX (BIVALIRUDIN MARKETED) (BIVALIRUDIN) (BIVALIRUDIN) [Suspect]
     Active Substance: BIVALIRUDIN
     Indication: PERCUTANEOUS CORONARY INTERVENTION
     Dosage: 15ML (0.75MG/KG), INTRAVEOUS BOLUS
     Route: 040
     Dates: start: 201409, end: 201409
  2. CLOPIDOGREL [Concomitant]
     Active Substance: CLOPIDOGREL BISULFATE

REACTIONS (2)
  - Abortion induced [None]
  - Maternal exposure during pregnancy [None]

NARRATIVE: CASE EVENT DATE: 201409
